FAERS Safety Report 6943529-4 (Version None)
Quarter: 2010Q3

REPORT INFORMATION
  Report Type: 
  Country: None (occurrence: None)
  Receive Date: 20100825
  Receipt Date: 20100825
  Transmission Date: 20110219
  Serious: Yes (Hospitalization)
  Sender: FDA-Public Use
  Company Number: None

PATIENT
  Sex: Male
  Weight: 85 kg

DRUGS (6)
  1. FLUDARABINE PHOSPHATE [Suspect]
     Dosage: 190 MG
     Dates: end: 20100402
  2. RITUXIMAB (MOAB C2B8 ANTI CD20, CHIMERIC) [Suspect]
     Dosage: 750 MG
     Dates: end: 20100329
  3. ASPIRIN [Concomitant]
  4. LOVASTATIN [Concomitant]
  5. METFORMIN [Concomitant]
  6. SYNTHROID [Concomitant]

REACTIONS (3)
  - FEBRILE NEUTROPENIA [None]
  - GASTROINTESTINAL DISORDER [None]
  - PAIN [None]
